FAERS Safety Report 11230688 (Version 2)
Quarter: 2017Q2

REPORT INFORMATION
  Report Type: Spontaneous
  Country: US (occurrence: US)
  Receive Date: 20150701
  Receipt Date: 20170519
  Transmission Date: 20170829
  Serious: Yes (Other)
  Sender: FDA-Public Use
  Company Number: US-JNJFOC-20150618137

PATIENT
  Age: 68 Year
  Sex: Male

DRUGS (1)
  1. INVOKAMET [Suspect]
     Active Substance: CANAGLIFLOZIN\METFORMIN HYDROCHLORIDE
     Indication: TYPE 2 DIABETES MELLITUS
     Route: 048
     Dates: end: 20150623

REACTIONS (6)
  - Visual impairment [Unknown]
  - Anhedonia [Unknown]
  - Amnesia [Unknown]
  - Fatigue [Unknown]
  - Tachyphrenia [Unknown]
  - Muscle atrophy [Unknown]
